FAERS Safety Report 10203122 (Version 1)
Quarter: 2014Q2

REPORT INFORMATION
  Report Type: Spontaneous
  Country: US (occurrence: US)
  Receive Date: 20140529
  Receipt Date: 20140529
  Transmission Date: 20141212
  Serious: Yes (Hospitalization, Other)
  Sender: FDA-Public Use
  Company Number: US-GLENMARK GENERICS INC.-2014GMK009550

PATIENT
  Age: 61 Year
  Sex: Female

DRUGS (1)
  1. HYDRALAZINE HCL [Suspect]
     Indication: HYPERTENSION
     Dosage: 100 MG, TID

REACTIONS (17)
  - Acute febrile neutrophilic dermatosis [Unknown]
  - Glomerulonephritis rapidly progressive [Unknown]
  - Fatigue [Unknown]
  - Oropharyngeal pain [Unknown]
  - Skin lesion [Recovered/Resolved]
  - Chromaturia [Unknown]
  - Rash papular [Unknown]
  - Blood creatinine increased [Recovering/Resolving]
  - Red blood cells urine positive [Unknown]
  - Antinuclear antibody positive [Unknown]
  - Double stranded DNA antibody positive [Unknown]
  - Antineutrophil cytoplasmic antibody positive [Recovering/Resolving]
  - Histone antibody positive [Unknown]
  - Red blood cell sedimentation rate increased [Unknown]
  - Urine protein/creatinine ratio [Recovering/Resolving]
  - Rash [Unknown]
  - Pyrexia [Unknown]
